FAERS Safety Report 20393666 (Version 2)
Quarter: 2022Q1

REPORT INFORMATION
  Report Type: Report from Study
  Country: US (occurrence: US)
  Receive Date: 20220128
  Receipt Date: 20220308
  Transmission Date: 20220423
  Serious: Yes (Hospitalization)
  Sender: FDA-Public Use
  Company Number: US-SEATTLE GENETICS-2021SGN06324

PATIENT
  Age: 23 Year
  Sex: Male
  Weight: 74.2 kg

DRUGS (8)
  1. BRENTUXIMAB VEDOTIN [Suspect]
     Active Substance: BRENTUXIMAB VEDOTIN
     Indication: Hodgkin^s disease
     Dosage: 89 MG/KG, DAYS 1 AND 15 OF EVERY 28-DAY CYCLE
     Route: 042
     Dates: start: 20210901, end: 20211123
  2. DOXORUBICIN [Suspect]
     Active Substance: DOXORUBICIN
     Indication: Hodgkin^s disease
     Dosage: 48 MG/M2, DAYS 1 AND 15 OF EVERY 28-DAY CYCLE
     Route: 042
     Dates: start: 20210901, end: 20211123
  3. DACARBAZINE [Suspect]
     Active Substance: DACARBAZINE
     Indication: Hodgkin^s disease
     Dosage: 720 MG/M2, DAYS 1 AND 15 OF EVERY 28-DAY CYCLE
     Route: 042
     Dates: start: 20210901, end: 20211123
  4. NIVOLUMAB [Suspect]
     Active Substance: NIVOLUMAB
     Indication: Hodgkin^s disease
     Dosage: 240 MG, DAYS 1 AND 15 OF EVERY 28-DAY CYCLE
     Route: 042
     Dates: start: 20210901, end: 20211123
  5. SENNA LEAF [Concomitant]
     Active Substance: SENNA LEAF
     Indication: Constipation
     Dosage: 8.6 MG, BID
     Route: 048
     Dates: start: 20210901
  6. ACETAMINOPHEN [Concomitant]
     Active Substance: ACETAMINOPHEN
     Indication: Back pain
     Dosage: 650 MG, PRN
     Route: 048
     Dates: start: 20210823
  7. MIRALAX [Concomitant]
     Active Substance: POLYETHYLENE GLYCOL 3350
     Indication: Constipation
     Dosage: 17 G, QD
     Route: 048
     Dates: start: 20210902
  8. ZOFRAN ODT [Concomitant]
     Active Substance: ONDANSETRON HYDROCHLORIDE
     Indication: Prophylaxis of nausea and vomiting
     Dosage: 4 MG, PRN
     Route: 048
     Dates: start: 20210902

REACTIONS (1)
  - Viral tonsillitis [Recovered/Resolved]

NARRATIVE: CASE EVENT DATE: 20211206
